FAERS Safety Report 20505704 (Version 4)
Quarter: 2022Q1

REPORT INFORMATION
  Report Type: Report from Study
  Country: IL (occurrence: None)
  Receive Date: 20220223
  Receipt Date: 20220304
  Transmission Date: 20220423
  Serious: No
  Sender: FDA-Public Use
  Company Number: IL-Eisai Medical Research-EC-2022-109137

PATIENT
  Age: 56 Year
  Sex: Female
  Weight: 61.6 kg

DRUGS (13)
  1. LENVATINIB [Suspect]
     Active Substance: LENVATINIB
     Indication: Renal cell carcinoma
     Route: 048
     Dates: start: 20220126, end: 20220208
  2. LENVATINIB [Suspect]
     Active Substance: LENVATINIB
     Route: 048
     Dates: start: 20220216
  3. QUAVONLIMAB [Suspect]
     Active Substance: QUAVONLIMAB
     Indication: Renal cell carcinoma
     Dosage: QUAVONLIMAB (MK-1308) 25 MG (+) PEMBROLIZUMAB (MK-3475) 400 MG
     Route: 042
     Dates: start: 20220126, end: 20220126
  4. XARELTO [Concomitant]
     Active Substance: RIVAROXABAN
     Dates: start: 20191020
  5. ROSUVASTATIN [Concomitant]
     Active Substance: ROSUVASTATIN
     Dates: start: 2020, end: 20220210
  6. EZETIMIBE [Concomitant]
     Active Substance: EZETIMIBE
     Dates: start: 2020, end: 20220210
  7. INDAPAMIDE [Concomitant]
     Active Substance: INDAPAMIDE
     Dates: start: 202107
  8. ESTRADIOL [Concomitant]
     Active Substance: ESTRADIOL
     Dates: start: 2021
  9. METFORMIN HYDROCHLORIDE\SITAGLIPTIN PHOSPHATE [Concomitant]
     Active Substance: METFORMIN HYDROCHLORIDE\SITAGLIPTIN PHOSPHATE
     Dates: start: 2021
  10. SODIUM CHLORIDE [Concomitant]
     Active Substance: SODIUM CHLORIDE
     Dates: start: 20210127, end: 20220127
  11. OFLODEX [Concomitant]
     Dates: start: 20220130, end: 20220208
  12. CHROMIUM PICOLINATE [Concomitant]
     Active Substance: CHROMIUM PICOLINATE
     Dates: start: 202201
  13. PEMBROLIZUMAB [Suspect]
     Active Substance: PEMBROLIZUMAB

REACTIONS (1)
  - Hypertension [Not Recovered/Not Resolved]

NARRATIVE: CASE EVENT DATE: 20220206
